FAERS Safety Report 11202930 (Version 2)
Quarter: 2016Q3

REPORT INFORMATION
  Report Type: Spontaneous
  Country: US (occurrence: US)
  Receive Date: 20150619
  Receipt Date: 20160701
  Transmission Date: 20161109
  Serious: Yes (Hospitalization, Other)
  Sender: FDA-Public Use
  Company Number: US-TEVA-565913USA

PATIENT
  Sex: Female

DRUGS (5)
  1. VENLAFAXINE [Suspect]
     Active Substance: VENLAFAXINE HYDROCHLORIDE
     Indication: DEPRESSION
     Dosage: 75 MILLIGRAM DAILY;
     Dates: start: 20150407
  2. VENLAFAXINE [Suspect]
     Active Substance: VENLAFAXINE HYDROCHLORIDE
     Dosage: 150 MILLIGRAM DAILY;
     Dates: start: 201604
  3. KLONOPIN [Concomitant]
     Active Substance: CLONAZEPAM
  4. ASPIRIN. [Concomitant]
     Active Substance: ASPIRIN
  5. VENLAFAXINE [Suspect]
     Active Substance: VENLAFAXINE HYDROCHLORIDE
     Indication: DEPRESSION

REACTIONS (12)
  - Nausea [Unknown]
  - Toxicity to various agents [Unknown]
  - Myocardial infarction [Unknown]
  - Palpitations [Unknown]
  - Hypoaesthesia [Unknown]
  - Drug ineffective [Unknown]
  - Product substitution issue [Unknown]
  - Panic attack [Unknown]
  - Malaise [Unknown]
  - Adverse event [Unknown]
  - Fatigue [Unknown]
  - Angina pectoris [Unknown]

NARRATIVE: CASE EVENT DATE: 201504
